FAERS Safety Report 11934795 (Version 1)
Quarter: 2016Q1

REPORT INFORMATION
  Report Type: Spontaneous
  Country: US (occurrence: None)
  Receive Date: 20160120
  Receipt Date: 20160120
  Transmission Date: 20160526
  Serious: Yes (Life-Threatening, Hospitalization, Disabling)
  Sender: FDA-Public Use
  Company Number: None

PATIENT
  Age: 48 Year
  Sex: Female
  Weight: 62.14 kg

DRUGS (7)
  1. TUMS [Suspect]
     Active Substance: CALCIUM CARBONATE
     Indication: NAUSEA
     Dates: start: 20140901, end: 20150208
  2. NEURONTIN [Concomitant]
     Active Substance: GABAPENTIN
  3. OXYCODONE [Concomitant]
     Active Substance: OXYCODONE
  4. MULTI-VITAMIN [Concomitant]
     Active Substance: .ALPHA.-TOCOPHEROL ACETATE, DL-\ASCORBIC ACID\CYANOCOBALAMIN\FLUORIDE ION\FOLIC ACID\NIACIN\PYRIDOXINE\RIBOFLAVIN\THIAMINE\VITAMIN A\VITAMIN D
  5. TUMS [Suspect]
     Active Substance: CALCIUM CARBONATE
     Indication: DYSPEPSIA
     Dates: start: 20140901, end: 20150208
  6. TUMS [Suspect]
     Active Substance: CALCIUM CARBONATE
     Indication: ABDOMINAL DISCOMFORT
     Dates: start: 20140901, end: 20150208
  7. BIOTIN [Concomitant]
     Active Substance: BIOTIN

REACTIONS (17)
  - Encephalopathy [None]
  - Bone pain [None]
  - Impaired work ability [None]
  - Drug ineffective [None]
  - Fatigue [None]
  - Lethargy [None]
  - Dementia [None]
  - Self esteem decreased [None]
  - Hypercalcaemia [None]
  - Dehydration [None]
  - Asthenia [None]
  - Anxiety [None]
  - Hallucination [None]
  - Urinary incontinence [None]
  - Constipation [None]
  - Acute kidney injury [None]
  - Myalgia [None]

NARRATIVE: CASE EVENT DATE: 20150208
